FAERS Safety Report 6315921-2 (Version None)
Quarter: 2009Q3

REPORT INFORMATION
  Report Type: 
  Country: None (occurrence: None)
  Receive Date: 20090820
  Receipt Date: 20070515
  Transmission Date: 20100115
  Serious: Yes (Hospitalization)
  Sender: FDA-Public Use
  Company Number: US-ASTRAZENECA-2006UW21816

PATIENT
  Age: 384 Month
  Sex: Female
  Weight: 100.7 kg

DRUGS (9)
  1. SEROQUEL [Suspect]
     Indication: BIPOLAR DISORDER
     Dosage: 600-800 MG
     Route: 048
     Dates: start: 20041104
  2. ZOLOFT [Concomitant]
     Indication: PANIC ATTACK
  3. ABILIFY [Concomitant]
  4. PAXIL CR [Concomitant]
     Dosage: 75-100 MG
     Route: 048
     Dates: start: 20041104
  5. VALIUM [Concomitant]
     Dosage: 4-8 MG
     Route: 048
     Dates: start: 20041104
  6. AMBIEN [Concomitant]
     Dosage: 10-20 MG
     Route: 048
     Dates: start: 20041104
  7. PEXEVA [Concomitant]
     Dosage: 40-80 MG
     Route: 048
     Dates: start: 20050401
  8. DEPAKOTE ER [Concomitant]
     Route: 048
     Dates: start: 20041116
  9. ESKALITH CR [Concomitant]
     Dosage: 450-900 MG
     Route: 048
     Dates: start: 20041104

REACTIONS (6)
  - DIABETES MELLITUS [None]
  - GESTATIONAL DIABETES [None]
  - JOINT SPRAIN [None]
  - SURGERY [None]
  - TYPE 1 DIABETES MELLITUS [None]
  - TYPE 2 DIABETES MELLITUS [None]
